FAERS Safety Report 19710450 (Version 2)
Quarter: 2021Q3

REPORT INFORMATION
  Report Type: Spontaneous
  Country: US (occurrence: US)
  Receive Date: 20210817
  Receipt Date: 20210929
  Transmission Date: 20211014
  Serious: No
  Sender: FDA-Public Use
  Company Number: US-JNJFOC-20210807487

PATIENT
  Age: 81 Year
  Sex: Male

DRUGS (2)
  1. FLOMAX [MORNIFLUMATE] [Concomitant]
     Active Substance: MORNIFLUMATE
     Indication: PROSTATOMEGALY
     Route: 065
     Dates: start: 2015
  2. TYLENOL 8 HR ARTHRITIS PAIN [Suspect]
     Active Substance: ACETAMINOPHEN
     Indication: ARTHRITIS
     Dosage: 2 CAPLETS I ONLY TOOK FOUR PILLS TOTAL TO WEDNESDAY INTO THURSDAY.
     Route: 048
     Dates: start: 20210730, end: 20210827

REACTIONS (2)
  - Inappropriate schedule of product administration [Unknown]
  - Rash pruritic [Recovered/Resolved]

NARRATIVE: CASE EVENT DATE: 20210730
